FAERS Safety Report 6555162-7 (Version None)
Quarter: 2010Q1

REPORT INFORMATION
  Report Type: 
  Country: None (occurrence: None)
  Receive Date: 20100128
  Receipt Date: 20100118
  Transmission Date: 20100710
  Serious: Yes (Hospitalization, Other)
  Sender: FDA-Public Use
  Company Number: CA-JNJFOC-20100103481

PATIENT
  Sex: Male
  Weight: 78.8 kg

DRUGS (4)
  1. REMICADE [Suspect]
     Indication: ANKYLOSING SPONDYLITIS
     Route: 042
  2. REMICADE [Suspect]
     Dosage: 28TH INFUSION
     Route: 042
  3. PARIET [Concomitant]
  4. TYLENOL W/ CODEINE NO. 3 [Concomitant]

REACTIONS (5)
  - BRONCHOPNEUMONIA [None]
  - CELLULITIS [None]
  - EYE INFECTION [None]
  - H1N1 INFLUENZA [None]
  - WOUND INFECTION STAPHYLOCOCCAL [None]
